FAERS Safety Report 8209196-7 (Version None)
Quarter: 2012Q1

REPORT INFORMATION
  Report Type: 
  Country: None (occurrence: None)
  Receive Date: 20120314
  Receipt Date: 20120308
  Transmission Date: 20120608
  Serious: Yes (Other)
  Sender: FDA-Public Use
  Company Number: US-BAYER-2012-023043

PATIENT
  Age: 34 Year
  Sex: Female

DRUGS (2)
  1. YASMIN [Suspect]
     Dosage: UNK
     Dates: start: 20050301, end: 20080101
  2. DROSPIRENONE AND ETHINYL ESTRADIOL [Suspect]
     Dosage: UNK
     Dates: start: 20080101, end: 20090101

REACTIONS (7)
  - CHOLECYSTECTOMY [None]
  - DEPRESSION [None]
  - INJURY [None]
  - EMOTIONAL DISTRESS [None]
  - FEAR OF DEATH [None]
  - NERVOUSNESS [None]
  - PAIN [None]
